FAERS Safety Report 16701985 (Version 1)
Quarter: 2019Q3

REPORT INFORMATION
  Report Type: Spontaneous
  Country: JP (occurrence: US)
  Receive Date: 20190814
  Receipt Date: 20190814
  Transmission Date: 20191004
  Serious: Yes (Other)
  Sender: FDA-Public Use
  Company Number: JP-JNJFOC-20190811885

PATIENT
  Age: 10 Month
  Sex: Male

DRUGS (1)
  1. DURAGESIC [Suspect]
     Active Substance: FENTANYL
     Indication: PRODUCT USE IN UNAPPROVED INDICATION
     Route: 065

REACTIONS (5)
  - Miosis [Unknown]
  - Off label use [Unknown]
  - Respiratory rate decreased [Unknown]
  - Product use issue [Unknown]
  - Toxicity to various agents [Unknown]
